FAERS Safety Report 7522096-0 (Version None)
Quarter: 2011Q2

REPORT INFORMATION
  Report Type: 
  Country: None (occurrence: None)
  Receive Date: 20110603
  Receipt Date: 20110601
  Transmission Date: 20111010
  Serious: Yes (Hospitalization, Other)
  Sender: FDA-Public Use
  Company Number: AU-PFIZER INC-2011118926

PATIENT
  Sex: Female

DRUGS (1)
  1. VARENICLINE TARTRATE [Suspect]

REACTIONS (3)
  - AORTIC OCCLUSION [None]
  - QUADRIPLEGIA [None]
  - MENTAL IMPAIRMENT [None]
